FAERS Safety Report 11179931 (Version 1)
Quarter: 2015Q2

REPORT INFORMATION
  Report Type: Spontaneous
  Country: US (occurrence: US)
  Receive Date: 20150611
  Receipt Date: 20150611
  Transmission Date: 20150821
  Serious: No
  Sender: FDA-Public Use
  Company Number: US-TEVA-553919USA

PATIENT
  Age: 59 Year
  Sex: Male

DRUGS (2)
  1. CAPECITABINE. [Suspect]
     Active Substance: CAPECITABINE
     Indication: MALIGNANT PERITONEAL NEOPLASM
     Dosage: TAKE 5 TWICE A DAY FOR 2 WEEKS ON AND 1 WEEK OFF FOR ONE MONTH
     Route: 048
     Dates: start: 20150304
  2. CAPECITABINE. [Suspect]
     Active Substance: CAPECITABINE
     Indication: COLON CANCER

REACTIONS (4)
  - Hypoaesthesia [Unknown]
  - Dry skin [Unknown]
  - Paraesthesia [Unknown]
  - Fatigue [Unknown]
